FAERS Safety Report 13278467 (Version 1)
Quarter: 2017Q1

REPORT INFORMATION
  Report Type: Spontaneous
  Country: FR (occurrence: FR)
  Receive Date: 20170228
  Receipt Date: 20170228
  Transmission Date: 20170428
  Serious: Yes (Hospitalization, Other)
  Sender: FDA-Public Use
  Company Number: FR-GILEAD-2017-0259328

PATIENT
  Age: 60 Year
  Sex: Male

DRUGS (10)
  1. APROVEL [Concomitant]
     Active Substance: IRBESARTAN
  2. LORMETAZEPAM [Concomitant]
     Active Substance: LORMETAZEPAM
  3. TAHOR [Concomitant]
     Active Substance: ATORVASTATIN CALCIUM
  4. CITALOPRAM [Concomitant]
     Active Substance: CITALOPRAM HYDROBROMIDE
  5. ALPRAZOLAM. [Concomitant]
     Active Substance: ALPRAZOLAM
  6. ATRIPLA [Suspect]
     Active Substance: EFAVIRENZ\EMTRICITABINE\TENOFOVIR DISOPROXIL FUMARATE
     Indication: HIV INFECTION
     Dosage: 600MG/200MG/245MG, QD
     Route: 048
     Dates: start: 201401
  7. REPAGLINIDE. [Concomitant]
     Active Substance: REPAGLINIDE
  8. TRUVADA [Suspect]
     Active Substance: EMTRICITABINE\TENOFOVIR DISOPROXIL FUMARATE
     Indication: HIV INFECTION
     Dosage: 200MG/245MG, QD
     Route: 048
     Dates: end: 201401
  9. JANUVIA [Concomitant]
     Active Substance: SITAGLIPTIN PHOSPHATE
  10. PREVISCAN                          /00261401/ [Concomitant]
     Active Substance: PENTOXIFYLLINE

REACTIONS (4)
  - Glycosuria [Unknown]
  - Nephroangiosclerosis [Unknown]
  - Renal failure [Recovering/Resolving]
  - Hyperphosphataemia [Unknown]

NARRATIVE: CASE EVENT DATE: 20161005
